FAERS Safety Report 25866128 (Version 1)
Quarter: 2025Q3

REPORT INFORMATION
  Report Type: Spontaneous
  Country: US (occurrence: None)
  Receive Date: 20250930
  Receipt Date: 20250930
  Transmission Date: 20251021
  Serious: Yes (Disabling)
  Sender: FDA-CTU
  Company Number: None

PATIENT
  Age: 75 Year
  Sex: Female
  Weight: 66.6 kg

DRUGS (12)
  1. KISUNLA [Suspect]
     Active Substance: DONANEMAB-AZBT
     Indication: Dementia Alzheimer^s type
     Dates: start: 20250805
  2. ARIMIDEX [Concomitant]
     Active Substance: ANASTROZOLE
  3. PROLIA [Concomitant]
     Active Substance: DENOSUMAB
  4. PRALUENT [Concomitant]
     Active Substance: ALIROCUMAB
  5. NAMENDA [Concomitant]
     Active Substance: MEMANTINE HYDROCHLORIDE
  6. BUSPAR [Concomitant]
     Active Substance: BUSPIRONE HYDROCHLORIDE
  7. ZETIA [Concomitant]
     Active Substance: EZETIMIBE
  8. PRISTIQ EXTENDED-RELEASE [Concomitant]
     Active Substance: DESVENLAFAXINE SUCCINATE
  9. PREDNISOLONE [Concomitant]
     Active Substance: PREDNISOLONE
  10. Famotodine [Concomitant]
  11. ASPIRIN [Concomitant]
     Active Substance: ASPIRIN
  12. CALCIUM [Concomitant]
     Active Substance: CALCIUM

REACTIONS (2)
  - Vision blurred [None]
  - Corneal graft rejection [None]

NARRATIVE: CASE EVENT DATE: 20250925
